FAERS Safety Report 9095363 (Version 2)
Quarter: 2013Q1

REPORT INFORMATION
  Report Type: Spontaneous
  Country: US (occurrence: None)
  Receive Date: 20130123
  Receipt Date: 20130225
  Transmission Date: 20140127
  Serious: Yes (Other)
  Sender: FDA-Public Use
  Company Number: 2013P1000610

PATIENT
  Age: 60 Year
  Sex: Male

DRUGS (3)
  1. INFUMORPH [Suspect]
     Indication: PAIN
     Dates: start: 20130111
  2. INFUMORPH [Suspect]
     Indication: NEUROPATHY PERIPHERAL
     Dates: start: 20130111
  3. INFUMORPH [Suspect]
     Indication: POST LAMINECTOMY SYNDROME
     Dates: start: 20130111

REACTIONS (4)
  - Fall [None]
  - Device leakage [None]
  - Device damage [None]
  - Therapeutic response decreased [None]
